FAERS Safety Report 7686829-5 (Version None)
Quarter: 2011Q3

REPORT INFORMATION
  Report Type: 
  Country: None (occurrence: None)
  Receive Date: 20110816
  Receipt Date: 20110810
  Transmission Date: 20111222
  Serious: Yes (Life-Threatening)
  Sender: FDA-Public Use
  Company Number: ES-ROCHE-785099

PATIENT
  Age: 28 Year
  Sex: Male

DRUGS (2)
  1. XELODA [Suspect]
     Indication: COLORECTAL CANCER STAGE III
     Dosage: FREQUENCY: DAILY. TWICE DAILY FOR 14 DAYS
     Route: 048
     Dates: start: 20110527, end: 20110601
  2. OXALIPLATIN [Concomitant]
     Indication: COLORECTAL CANCER STAGE III
     Route: 065
     Dates: start: 20110527

REACTIONS (3)
  - PULMONARY OEDEMA [None]
  - CARDIAC FAILURE [None]
  - TOXICITY TO VARIOUS AGENTS [None]
